FAERS Safety Report 15299720 (Version 4)
Quarter: 2020Q3

REPORT INFORMATION
  Report Type: Report from Study
  Country: FR (occurrence: FR)
  Receive Date: 20180821
  Receipt Date: 20190319
  Transmission Date: 20201105
  Serious: Yes (Hospitalization, Other)
  Sender: FDA-Public Use
  Company Number: FR-ASTRAZENECA-2018SE69598

PATIENT
  Age: 23180 Day
  Sex: Female
  Weight: 66 kg

DRUGS (3)
  1. EXEMESTANE. [Suspect]
     Active Substance: EXEMESTANE
     Dosage: 25 MG, (CUMULATIVE DOSE 1638 MG)
     Route: 048
     Dates: start: 20180314
  2. TREMELIMUMAB. [Suspect]
     Active Substance: TREMELIMUMAB
     Route: 042
     Dates: start: 20180315
  3. MEDI4736 [Suspect]
     Active Substance: DURVALUMAB
     Route: 042
     Dates: start: 20180315

REACTIONS (2)
  - Hepatocellular injury [Recovered/Resolved]
  - Pulmonary granuloma [Recovered/Resolved]

NARRATIVE: CASE EVENT DATE: 20180517
